FAERS Safety Report 12706757 (Version 2)
Quarter: 2020Q1

REPORT INFORMATION
  Report Type: Report from Study
  Country: CO (occurrence: CO)
  Receive Date: 20160901
  Receipt Date: 20200123
  Transmission Date: 20200409
  Serious: Yes (Hospitalization, Disabling, Other)
  Sender: FDA-Public Use
  Company Number: CO-JNJFOC-20160824801

PATIENT
  Age: 56 Year
  Sex: Male
  Weight: 61 kg

DRUGS (1)
  1. STELARA [Suspect]
     Active Substance: USTEKINUMAB
     Indication: PSORIATIC ARTHROPATHY
     Route: 058
     Dates: start: 20150904, end: 20160113

REACTIONS (2)
  - Lymphatic system neoplasm [Recovering/Resolving]
  - Demyelinating polyneuropathy [Recovering/Resolving]

NARRATIVE: CASE EVENT DATE: 20151217
